FAERS Safety Report 17121653 (Version 1)
Quarter: 2019Q4

REPORT INFORMATION
  Report Type: Report from Study
  Country: US (occurrence: US)
  Receive Date: 20191206
  Receipt Date: 20191206
  Transmission Date: 20200122
  Serious: Yes (Life-Threatening, Hospitalization)
  Sender: FDA-Public Use
  Company Number: US-MYLANLABS-2019M1119053

PATIENT

DRUGS (5)
  1. INDOMETHACIN                       /00003801/ [Concomitant]
     Active Substance: INDOMETHACIN
     Indication: PRODUCT USED FOR UNKNOWN INDICATION
     Dosage: 0.5 MG/KG/DOSE EVERY 6 HOURS
     Route: 065
  2. GM-CSF [Suspect]
     Active Substance: GRANULOCYTE-MACROPHAGE COLONY-STIMULATING FACTOR
     Indication: NEUROBLASTOMA
     Dosage: 250 MG/M2 ON DAY 1 THROUGH 2 AND DAY 8 THROUGH 14
     Route: 058
  3. ISOTRETINOIN. [Suspect]
     Active Substance: ISOTRETINOIN
     Indication: MINIMAL RESIDUAL DISEASE
  4. ISOTRETINOIN. [Suspect]
     Active Substance: ISOTRETINOIN
     Indication: NEUROBLASTOMA
     Dosage: 160 MG/M2/DAY, DIVIDED TWICE DAILY FOR 14 DAYS STARTING ON DAY 11
     Route: 065
  5. GM-CSF [Suspect]
     Active Substance: GRANULOCYTE-MACROPHAGE COLONY-STIMULATING FACTOR
     Indication: MINIMAL RESIDUAL DISEASE

REACTIONS (3)
  - Capillary leak syndrome [Recovered/Resolved]
  - Hypotension [Recovered/Resolved]
  - Off label use [Unknown]
